FAERS Safety Report 15132843 (Version 3)
Quarter: 2018Q3

REPORT INFORMATION
  Report Type: Report from Study
  Country: DE (occurrence: DE)
  Receive Date: 20180712
  Receipt Date: 20180816
  Transmission Date: 20181010
  Serious: Yes (Life-Threatening, Hospitalization, Other)
  Sender: FDA-Public Use
  Company Number: DE-TEVA-2018-DE-923015

PATIENT
  Age: 38 Year
  Sex: Female
  Weight: 65 kg

DRUGS (40)
  1. PEG?INTERFERON ALFA 2A [Suspect]
     Active Substance: PEGINTERFERON ALFA-2A
     Route: 058
     Dates: start: 20130415, end: 20131110
  2. AMPHO MORONAL [Concomitant]
     Active Substance: AMPHOTERICIN B
     Route: 065
     Dates: start: 20130610
  3. L THYROXIN BETA [Concomitant]
     Route: 065
     Dates: start: 20130627
  4. L THYROXIN BETA [Concomitant]
     Route: 065
     Dates: start: 20131203
  5. L THYROXIN BETA [Concomitant]
     Route: 065
     Dates: start: 20130802, end: 20131202
  6. RIBAVIRIN. [Suspect]
     Active Substance: RIBAVIRIN
     Indication: HEPATITIS C
     Dosage: 600 MILLIGRAM DAILY;
     Route: 048
     Dates: start: 20130321, end: 20140317
  7. VIVINOX [Concomitant]
     Route: 065
     Dates: start: 20130909
  8. AZITHROMYCIN ANHYDROUS. [Concomitant]
     Active Substance: AZITHROMYCIN ANHYDROUS
     Dosage: 500 MILLIGRAM DAILY; LATER 1 PER ONE DAY
     Route: 065
     Dates: start: 20141030, end: 20141104
  9. BEPANTHEN [Concomitant]
     Route: 065
     Dates: start: 20130603
  10. L THYROXIN BETA [Concomitant]
     Route: 065
     Dates: start: 20130722, end: 20131202
  11. L THYROXIN BETA [Concomitant]
     Route: 065
     Dates: start: 20130722, end: 20130819
  12. BUDESONIDE EASYHALER [Concomitant]
     Active Substance: BUDESONIDE
     Route: 065
     Dates: start: 20140331
  13. VITAMIN D3 [Concomitant]
     Active Substance: CHOLECALCIFEROL
     Route: 048
     Dates: start: 20130320, end: 20130415
  14. AZITHROMYCIN ANHYDROUS. [Concomitant]
     Active Substance: AZITHROMYCIN ANHYDROUS
     Route: 065
     Dates: start: 20130712, end: 20130714
  15. AZITHROMYCIN ANHYDROUS. [Concomitant]
     Active Substance: AZITHROMYCIN ANHYDROUS
     Route: 065
     Dates: start: 20130503, end: 20130505
  16. TETRACAINE HYDROCHLORIDE. [Concomitant]
     Active Substance: TETRACAINE HYDROCHLORIDE
     Route: 065
     Dates: start: 20130627
  17. BETAGALEN [Concomitant]
     Route: 065
     Dates: start: 20130426
  18. IBUPROFEN. [Concomitant]
     Active Substance: IBUPROFEN
     Route: 065
  19. L THYROXIN BETA [Concomitant]
     Route: 065
     Dates: start: 20130617
  20. UNACID [Concomitant]
     Dosage: 1 DOSAGE FORMS DAILY;
     Route: 065
     Dates: start: 20140324, end: 20140328
  21. DEXAMYTREX [Concomitant]
     Active Substance: DEXAMETHASONE SODIUM PHOSPHATE\GENTAMICIN SULFATE
     Route: 065
     Dates: start: 20130712
  22. LOTRIDERM [Concomitant]
     Active Substance: BETAMETHASONE DIPROPIONATE\CLOTRIMAZOLE
     Route: 065
     Dates: start: 20130610
  23. OMEPRAZOL [Concomitant]
     Active Substance: OMEPRAZOLE
     Route: 065
     Dates: start: 20130503
  24. PEG?INTERFERON ALFA 2A [Suspect]
     Active Substance: PEGINTERFERON ALFA-2A
     Route: 058
     Dates: start: 20131118, end: 20140317
  25. AZITHROMYCIN ANHYDROUS. [Concomitant]
     Active Substance: AZITHROMYCIN ANHYDROUS
     Route: 065
     Dates: start: 20140408, end: 20140410
  26. AZITHROMYCIN ANHYDROUS. [Concomitant]
     Active Substance: AZITHROMYCIN ANHYDROUS
     Route: 065
     Dates: start: 20130527, end: 20130529
  27. LOPERAMID [Concomitant]
     Active Substance: LOPERAMIDE
     Route: 065
     Dates: start: 20130603, end: 20130603
  28. AZITHROMYCIN ANHYDROUS. [Concomitant]
     Active Substance: AZITHROMYCIN ANHYDROUS
     Route: 065
     Dates: start: 20130627, end: 20130629
  29. PEG?INTERFERON ALFA 2A [Suspect]
     Active Substance: PEGINTERFERON ALFA-2A
     Indication: HEPATITIS C
     Route: 058
     Dates: start: 20131111, end: 20131117
  30. AZITHROMYCIN ANHYDROUS. [Concomitant]
     Active Substance: AZITHROMYCIN ANHYDROUS
     Dosage: LATER 1 PER ONE DAY
     Route: 065
     Dates: start: 20141030, end: 20141104
  31. CEFUROXIM [Concomitant]
     Active Substance: CEFUROXIME
     Route: 065
     Dates: start: 20130603, end: 20130609
  32. NEO?ANGIN (GERMANY) [Concomitant]
     Route: 065
     Dates: start: 20131118
  33. FUCICORT [Concomitant]
     Active Substance: BETAMETHASONE VALERATE\FUSIDIC ACID
     Route: 065
     Dates: start: 20130715
  34. RISPERIDON [Concomitant]
     Active Substance: RISPERIDONE
     Route: 065
     Dates: start: 20140401, end: 20140408
  35. L THYROXIN BETA [Concomitant]
     Route: 065
     Dates: start: 20131202
  36. RIBAVIRIN. [Suspect]
     Active Substance: RIBAVIRIN
     Route: 048
     Dates: start: 20130321, end: 20140317
  37. AMPHO MORONAL [Concomitant]
     Active Substance: AMPHOTERICIN B
     Route: 065
     Dates: start: 20131230
  38. MIRTAZAPIN [Concomitant]
     Active Substance: MIRTAZAPINE
     Route: 065
     Dates: start: 20130402
  39. UNACID [Concomitant]
     Dosage: 2 DOSAGE FORMS DAILY;
     Route: 065
     Dates: start: 20140324, end: 20140328
  40. METAMIZOL [Concomitant]
     Active Substance: METAMIZOLE SODIUM
     Route: 065
     Dates: start: 20130627

REACTIONS (18)
  - Hypersensitivity [Unknown]
  - Muscle spasms [Unknown]
  - Alcohol abuse [Recovered/Resolved]
  - Drug dependence [Not Recovered/Not Resolved]
  - Dyspepsia [Recovered/Resolved]
  - Abdominal discomfort [Recovered/Resolved]
  - Muscle spasms [Recovered/Resolved]
  - Oropharyngeal pain [Recovered/Resolved]
  - Alanine aminotransferase increased [Not Recovered/Not Resolved]
  - Bulimia nervosa [Recovered/Resolved]
  - Nausea [Unknown]
  - Wound infection [Recovered/Resolved]
  - Bradycardia [Not Recovered/Not Resolved]
  - Bulimia nervosa [Recovered/Resolved]
  - Syncope [Unknown]
  - Hypotension [Unknown]
  - Weight decreased [Not Recovered/Not Resolved]
  - Circulatory collapse [Unknown]

NARRATIVE: CASE EVENT DATE: 20130415
